FAERS Safety Report 20994866 (Version 4)
Quarter: 2023Q1

REPORT INFORMATION
  Report Type: Spontaneous
  Country: JP (occurrence: JP)
  Receive Date: 20220622
  Receipt Date: 20230213
  Transmission Date: 20230418
  Serious: Yes (Other)
  Sender: FDA-Public Use
  Company Number: JP-ASTELLAS-2022JP008663

PATIENT
  Sex: Female

DRUGS (1)
  1. LINACLOTIDE [Suspect]
     Active Substance: LINACLOTIDE
     Indication: Constipation
     Dosage: 0.5 MG/DAY, UNKNOWN FREQ.
     Route: 048

REACTIONS (3)
  - Blood potassium decreased [Recovered/Resolved]
  - Faeces soft [Recovered/Resolved]
  - Blood sodium decreased [Recovered/Resolved]
